FAERS Safety Report 20289554 (Version 1)
Quarter: 2022Q1

REPORT INFORMATION
  Report Type: Spontaneous
  Country: FR (occurrence: FR)
  Receive Date: 20220104
  Receipt Date: 20220104
  Transmission Date: 20220423
  Serious: Yes (Other)
  Sender: FDA-Public Use
  Company Number: None

PATIENT
  Age: 66 Year
  Sex: Male
  Weight: 59 kg

DRUGS (3)
  1. DOXYCYCLINE [Suspect]
     Active Substance: DOXYCYCLINE
     Indication: Glomerulonephritis
     Dosage: 200 MG, QD(100MG 2 FOIS PAR JOUR DIMINUEE A 100MG PAR JOUR A PARTIR DU 24/02/2021)
     Route: 048
     Dates: start: 20210219, end: 20210302
  2. AZACTAM [Suspect]
     Active Substance: AZTREONAM
     Indication: Glomerulonephritis
     Dosage: 2 G, QD( POUDRE ET SOLUTION POUR USAGE PARENTERAL)
     Route: 042
     Dates: start: 20210218, end: 20210302
  3. LEVOFLOXACIN [Suspect]
     Active Substance: LEVOFLOXACIN
     Indication: Glomerulonephritis
     Dosage: 500 MG (LE 18/02/2021 PUIS 250 MG LES 19/02, 21/02, 24/02,26/02 ET 28/02)
     Route: 048
     Dates: start: 20210218, end: 20210228

REACTIONS (2)
  - Wrong strength [Recovered/Resolved]
  - Confusional state [Recovering/Resolving]

NARRATIVE: CASE EVENT DATE: 20210218
